FAERS Safety Report 21580191 (Version 1)
Quarter: 2022Q4

REPORT INFORMATION
  Report Type: Spontaneous
  Country: HR (occurrence: HR)
  Receive Date: 20221110
  Receipt Date: 20221110
  Transmission Date: 20230113
  Serious: Yes (Hospitalization, Other)
  Sender: FDA-Public Use
  Company Number: HR-ABBVIE-4194406

PATIENT
  Age: 41 Year
  Sex: Male

DRUGS (1)
  1. GLECAPREVIR\PIBRENTASVIR [Suspect]
     Active Substance: GLECAPREVIR\PIBRENTASVIR
     Indication: Hepatitis C
     Dosage: TIME INTERVAL: 0.33333333 DAYS: 100MG/40MG, THREE TIMES PER DAY FOR 8 WEEKS
     Route: 048
     Dates: start: 20220226, end: 20220422

REACTIONS (5)
  - Acute myeloid leukaemia [Recovered/Resolved]
  - Body temperature increased [Recovered/Resolved]
  - Body temperature increased [Recovered/Resolved]
  - Body temperature increased [Recovered/Resolved]
  - Febrile neutropenia [Recovered/Resolved]

NARRATIVE: CASE EVENT DATE: 20220415
